FAERS Safety Report 8542362-X (Version None)
Quarter: 2012Q3

REPORT INFORMATION
  Report Type: 
  Country: None (occurrence: None)
  Receive Date: 20120726
  Receipt Date: 20111019
  Transmission Date: 20120928
  Serious: Yes (Hospitalization)
  Sender: FDA-Public Use
  Company Number: US-ASTRAZENECA-2011SE63342

PATIENT
  Age: 28 Year
  Sex: Male

DRUGS (2)
  1. CELEXA [Concomitant]
  2. SEROQUEL XR [Suspect]
     Route: 048
     Dates: start: 20111016

REACTIONS (1)
  - AKATHISIA [None]
